FAERS Safety Report 7428927-7 (Version None)
Quarter: 2011Q2

REPORT INFORMATION
  Report Type: 
  Country: None (occurrence: None)
  Receive Date: 20110421
  Receipt Date: 20110411
  Transmission Date: 20111010
  Serious: Yes (Disabling)
  Sender: FDA-Public Use
  Company Number: DE-JNJFOC-20101208152

PATIENT
  Age: 49 Year
  Sex: Male

DRUGS (4)
  1. TAVANIC [Suspect]
     Indication: CYSTITIS
     Route: 048
  2. TAVANIC [Suspect]
     Route: 048
  3. TAVANIC [Suspect]
     Indication: PROSTATITIS
     Route: 048
  4. TAVANIC [Suspect]
     Route: 048

REACTIONS (5)
  - TENDON DISORDER [None]
  - INAPPROPRIATE SCHEDULE OF DRUG ADMINISTRATION [None]
  - ARTHRALGIA [None]
  - ARTHROPATHY [None]
  - TENDONITIS [None]
